FAERS Safety Report 19653768 (Version 3)
Quarter: 2021Q4

REPORT INFORMATION
  Report Type: Report from Study
  Country: None (occurrence: CH)
  Receive Date: 20210804
  Receipt Date: 20211011
  Transmission Date: 20220303
  Serious: Yes (Hospitalization)
  Sender: FDA-Public Use
  Company Number: CH-ABBVIE-21K-151-4019183-00

PATIENT
  Age: 77 Year
  Sex: Male

DRUGS (7)
  1. CARBIDOPA\LEVODOPA [Suspect]
     Active Substance: CARBIDOPA\LEVODOPA
     Indication: Parkinson^s disease
     Dosage: MD: 2 ML, CRD: 5.2 ML/H, ED: 1 ML
     Route: 050
     Dates: start: 20210210, end: 20210211
  2. CARBIDOPA\LEVODOPA [Suspect]
     Active Substance: CARBIDOPA\LEVODOPA
     Dosage: MD: 2.5 ML, CRD: 4.7 ML/H, ED: 1 ML
     Route: 050
     Dates: start: 20210211, end: 20210301
  3. CARBIDOPA\LEVODOPA [Suspect]
     Active Substance: CARBIDOPA\LEVODOPA
     Dosage: MD: 8 ML, CRD: 5.3 ML/H, ED: 1 ML
     Route: 050
     Dates: start: 20210301, end: 20210304
  4. CARBIDOPA\LEVODOPA [Suspect]
     Active Substance: CARBIDOPA\LEVODOPA
     Dosage: MD: 8 ML, CRD: 5.1 ML/H, ED: 1 ML
     Route: 050
     Dates: start: 20210304, end: 20210407
  5. CARBIDOPA\LEVODOPA [Suspect]
     Active Substance: CARBIDOPA\LEVODOPA
     Dosage: MD: 8 ML, CRD: 5.2 ML/H, ED: 1 ML
     Route: 050
     Dates: start: 20210407, end: 20210408
  6. CARBIDOPA\LEVODOPA [Suspect]
     Active Substance: CARBIDOPA\LEVODOPA
     Dosage: MD: 8 ML; CRD: 5,4 ML/H; ED: 2 ML
     Route: 050
     Dates: start: 20210408, end: 20210702
  7. CARBIDOPA\LEVODOPA [Suspect]
     Active Substance: CARBIDOPA\LEVODOPA
     Dosage: MD: 6 ML, CRD: 5.5 ML/H, ED: 1 ML
     Route: 050
     Dates: start: 20210702

REACTIONS (1)
  - Unintentional medical device removal [Recovered/Resolved]

NARRATIVE: CASE EVENT DATE: 20210729
